FAERS Safety Report 17148534 (Version 2)
Quarter: 2019Q4

REPORT INFORMATION
  Report Type: Spontaneous
  Country: US (occurrence: US)
  Receive Date: 20191212
  Receipt Date: 20191220
  Transmission Date: 20200122
  Serious: Yes (Other)
  Sender: FDA-Public Use
  Company Number: US-OREXO US, INC.-ORE201912-000134

PATIENT
  Sex: Female

DRUGS (5)
  1. ZUBSOLV [Suspect]
     Active Substance: BUPRENORPHINE HYDROCHLORIDE\NALOXONE HYDROCHLORIDE
     Dosage: CUT THE DOSE IN HALF - 1.2 MG
     Route: 060
  2. ZUBSOLV [Suspect]
     Active Substance: BUPRENORPHINE HYDROCHLORIDE\NALOXONE HYDROCHLORIDE
     Dosage: REDUCED TO HALF 4.0 MG
     Route: 060
  3. ZUBSOLV [Suspect]
     Active Substance: BUPRENORPHINE HYDROCHLORIDE\NALOXONE HYDROCHLORIDE
     Dosage: RECHALLENGED WITH 8.6 MG (2 TABLETS)
     Route: 060
  4. ZUBSOLV [Suspect]
     Active Substance: BUPRENORPHINE HYDROCHLORIDE\NALOXONE HYDROCHLORIDE
     Indication: DEPENDENCE
     Dosage: 8.SOMETHING
     Route: 060
  5. ZUBSOLV [Suspect]
     Active Substance: BUPRENORPHINE HYDROCHLORIDE\NALOXONE HYDROCHLORIDE
     Dosage: REDUCED TO 2.9 MG
     Route: 060

REACTIONS (4)
  - Wrong technique in product usage process [Unknown]
  - Scar [Unknown]
  - Alopecia [Unknown]
  - Oedema [Recovering/Resolving]
